FAERS Safety Report 9300699 (Version 1)
Quarter: 2013Q2

REPORT INFORMATION
  Report Type: Spontaneous
  Country: US (occurrence: None)
  Receive Date: 20130520
  Receipt Date: 20130520
  Transmission Date: 20140414
  Serious: Yes (Life-Threatening)
  Sender: FDA-Public Use
  Company Number: None

PATIENT
  Age: 58 Year
  Sex: Male
  Weight: 96.16 kg

DRUGS (1)
  1. EFFIENT [Suspect]
     Dosage: 10 MG TABLET 1 DAILY ORAL
     Route: 048
     Dates: start: 20130417, end: 20130429

REACTIONS (6)
  - Hot flush [None]
  - Chills [None]
  - Dizziness [None]
  - Pruritus [None]
  - Respiratory distress [None]
  - Raynaud^s phenomenon [None]
